FAERS Safety Report 14418823 (Version 1)
Quarter: 2018Q1

REPORT INFORMATION
  Report Type: Spontaneous
  Country: US (occurrence: US)
  Receive Date: 20180122
  Receipt Date: 20180122
  Transmission Date: 20180509
  Serious: No
  Sender: FDA-Public Use
  Company Number: US-TEVA-2017-US-834746

PATIENT
  Age: 34 Year
  Sex: Female

DRUGS (2)
  1. SPRINTEC [Suspect]
     Active Substance: ETHINYL ESTRADIOL\NORGESTIMATE
     Indication: ENDOMETRIOSIS
     Dosage: DOSE STRENGTH:  0.250 MG/0.035 MG
     Route: 048
     Dates: start: 20171121
  2. SPRINTEC [Suspect]
     Active Substance: ETHINYL ESTRADIOL\NORGESTIMATE
     Indication: OVARIAN CYST

REACTIONS (3)
  - Adnexa uteri pain [Unknown]
  - Menorrhagia [Unknown]
  - Off label use [Unknown]

NARRATIVE: CASE EVENT DATE: 20171203
